FAERS Safety Report 5460400-8 (Version None)
Quarter: 2007Q3

REPORT INFORMATION
  Report Type: 
  Country: None (occurrence: None)
  Receive Date: 20070919
  Receipt Date: 20070711
  Transmission Date: 20080115
  Serious: Yes (Other)
  Sender: FDA-Public Use
  Company Number: US-ASTRAZENECA-2007UW16175

PATIENT
  Age: 63 Year
  Sex: Female

DRUGS (5)
  1. SEROQUEL [Suspect]
     Indication: SLEEP DISORDER
     Route: 048
     Dates: start: 20051201, end: 20060301
  2. SEROQUEL [Suspect]
     Route: 048
     Dates: start: 20061101
  3. SEROQUEL [Suspect]
     Route: 048
  4. METFORMIN HCL [Concomitant]
  5. HYPOTHYROID MEDICATION [Concomitant]

REACTIONS (2)
  - TARDIVE DYSKINESIA [None]
  - THIRST [None]
